FAERS Safety Report 4600700-4 (Version None)
Quarter: 2005Q1

REPORT INFORMATION
  Report Type: 
  Country: None (occurrence: None)
  Receive Date: 20050307
  Receipt Date: 20050228
  Transmission Date: 20050727
  Serious: Yes (Death)
  Sender: FDA-Public Use
  Company Number: US-MERCK-0503USA00292

PATIENT
  Age: 44 Year
  Sex: Female

DRUGS (9)
  1. PEPCID [Suspect]
     Route: 048
     Dates: start: 20011001, end: 20010101
  2. NADOLOL [Suspect]
     Route: 065
     Dates: start: 20011001, end: 20010101
  3. VITAMINS (UNSPECIFIED) [Concomitant]
     Route: 065
     Dates: start: 20011001
  4. VASOTEC [Concomitant]
     Route: 048
     Dates: start: 20011001
  5. PREDNISONE [Concomitant]
     Route: 065
     Dates: start: 20011001
  6. CALCIUM ACETATE [Concomitant]
     Route: 065
     Dates: start: 20011001
  7. MORPHINE SULFATE [Concomitant]
     Route: 042
     Dates: start: 20011001
  8. MEPERIDINE HYDROCHLORIDE AND PROMETHAZINE HYDROCHLORIDE [Concomitant]
     Route: 065
     Dates: start: 20011001
  9. TORADOL [Concomitant]
     Route: 065
     Dates: start: 20011001

REACTIONS (3)
  - ANAEMIA [None]
  - RENAL FAILURE [None]
  - THROMBOCYTOPENIA [None]
